FAERS Safety Report 13260529 (Version 1)
Quarter: 2017Q1

REPORT INFORMATION
  Report Type: Report from Study
  Country: GB (occurrence: GB)
  Receive Date: 20170222
  Receipt Date: 20170222
  Transmission Date: 20170428
  Serious: Yes (Hospitalization)
  Sender: FDA-Public Use
  Company Number: GB-COVIS PHARMA S.A.R.L.-2017COV00005

PATIENT
  Age: 51 Year
  Sex: Female

DRUGS (8)
  1. RILUZOLE. [Suspect]
     Active Substance: RILUZOLE
  2. MOMETASONE [Concomitant]
     Active Substance: MOMETASONE
     Dosage: UNK
     Dates: start: 1980
  3. FLUOXETINE [Suspect]
     Active Substance: FLUOXETINE HYDROCHLORIDE
  4. SALBUTAMOL [Concomitant]
     Active Substance: ALBUTEROL
  5. BLINDED THERAPY [Suspect]
     Active Substance: INVESTIGATIONAL PRODUCT
     Dosage: 1 DOSAGE UNITS, 2X/DAY
     Route: 048
     Dates: start: 20150911, end: 20161031
  6. AMILORIDE [Suspect]
     Active Substance: AMILORIDE
  7. SALMETEROL [Concomitant]
     Active Substance: SALMETEROL
     Dosage: UNK
     Dates: start: 1980
  8. PROLAIR [Concomitant]
     Dosage: UNK
     Dates: start: 1980

REACTIONS (2)
  - Urinary tract infection [Recovered/Resolved]
  - Seizure [Recovered/Resolved]

NARRATIVE: CASE EVENT DATE: 20161031
